FAERS Safety Report 6183784-4 (Version None)
Quarter: 2009Q2

REPORT INFORMATION
  Report Type: 
  Country: None (occurrence: None)
  Receive Date: 20090508
  Receipt Date: 20090501
  Transmission Date: 20091009
  Serious: Yes (Other)
  Sender: FDA-Public Use
  Company Number: US-BAYER-200911379BCC

PATIENT
  Sex: Female

DRUGS (1)
  1. ALEVE (CAPLET) [Suspect]
     Indication: MENISCUS LESION
     Route: 048
     Dates: start: 20090401

REACTIONS (2)
  - FATIGUE [None]
  - SOMNOLENCE [None]
